FAERS Safety Report 9335987 (Version 2)
Quarter: 2013Q4

REPORT INFORMATION
  Report Type: Spontaneous
  Country: US (occurrence: US)
  Receive Date: 20130607
  Receipt Date: 20131028
  Transmission Date: 20140711
  Serious: Yes (Death, Hospitalization)
  Sender: FDA-Public Use
  Company Number: US-B.I. PHARMACEUTICALS,INC./RIDGEFIELD-2013-BI-15779BP

PATIENT
  Sex: Female
  Weight: 106.14 kg

DRUGS (8)
  1. PRADAXA [Suspect]
     Indication: ATRIAL FIBRILLATION
     Dosage: 150 MG
     Dates: start: 20110729
  2. OXYCODONE [Concomitant]
  3. MULTAQ [Concomitant]
  4. JANUVIA [Concomitant]
  5. AMLODIPINE BESYLATE [Concomitant]
  6. TRILIPIX [Concomitant]
  7. LOSARTAN POTASSIUM [Concomitant]
  8. METOPROLOL TARTRATE [Concomitant]

REACTIONS (4)
  - Gastrointestinal haemorrhage [Fatal]
  - Dyspnoea [Unknown]
  - Gait disturbance [Unknown]
  - Haemorrhoidal haemorrhage [Unknown]
